FAERS Safety Report 16805705 (Version 1)
Quarter: 2019Q3

REPORT INFORMATION
  Report Type: Spontaneous
  Country: US (occurrence: US)
  Receive Date: 20190913
  Receipt Date: 20190913
  Transmission Date: 20191005
  Serious: Yes (Other)
  Sender: FDA-Public Use
  Company Number: US-SAOL THERAPEUTICS-2019SAO00347

PATIENT
  Age: 45 Year
  Sex: Female

DRUGS (6)
  1. ORAL BACLOFEN [Suspect]
     Active Substance: BACLOFEN
     Dosage: 60 MG
     Route: 048
     Dates: end: 20190829
  2. LIORESAL [Suspect]
     Active Substance: BACLOFEN
     Dosage: 218.1 ?G, \DAY
     Route: 037
     Dates: start: 201902, end: 2019
  3. LIORESAL [Suspect]
     Active Substance: BACLOFEN
     Dosage: 100 ?G, \DAY
     Route: 037
     Dates: start: 2019, end: 20190829
  4. LIORESAL [Suspect]
     Active Substance: BACLOFEN
     Indication: MUSCLE SPASTICITY
     Dosage: 115 ?G, \DAY
     Route: 037
     Dates: end: 201902
  5. LIORESAL [Suspect]
     Active Substance: BACLOFEN
     Dosage: 218 ?G, \DAY
     Route: 037
     Dates: start: 20190829
  6. ORAL BACLOFEN [Suspect]
     Active Substance: BACLOFEN
     Dosage: 30 MG
     Dates: start: 20190829

REACTIONS (11)
  - Dyspnoea [Unknown]
  - Pain [Recovered/Resolved]
  - Nausea [Recovered/Resolved]
  - Device dislocation [Recovered/Resolved]
  - Insomnia [Unknown]
  - Personality change [Recovered/Resolved]
  - Salivary hypersecretion [Unknown]
  - Device damage [Recovered/Resolved]
  - Somnolence [Recovered/Resolved]
  - Irritability [Unknown]
  - Drug withdrawal syndrome [Recovered/Resolved]

NARRATIVE: CASE EVENT DATE: 2019
